FAERS Safety Report 5269300-X (Version None)
Quarter: 2007Q1

REPORT INFORMATION
  Report Type: 
  Country: None (occurrence: None)
  Receive Date: 20070319
  Receipt Date: 20070309
  Transmission Date: 20070707
  Serious: Yes (Other)
  Sender: FDA-Public Use
  Company Number: US-PFIZER INC-2006141749

PATIENT
  Sex: Female
  Weight: 53.1 kg

DRUGS (7)
  1. XANAX [Suspect]
     Indication: ANXIETY
     Dosage: TEXT:UNKNOWN
  2. CHANTIX [Suspect]
     Indication: SMOKING CESSATION THERAPY
     Dates: start: 20061001, end: 20070308
  3. RESTORIL [Concomitant]
  4. PREVACID [Concomitant]
  5. PRENATAL VITAMINS [Concomitant]
  6. VITAMIN B-12 [Concomitant]
  7. VITAMIN D [Concomitant]

REACTIONS (27)
  - ADVERSE DRUG REACTION [None]
  - BACK PAIN [None]
  - BLEPHARITIS [None]
  - CATARACT OPERATION [None]
  - COLD SWEAT [None]
  - CONSTIPATION [None]
  - DACRYOCYSTORHINOSTOMY [None]
  - DEPRESSION [None]
  - DISORIENTATION [None]
  - DRUG TOLERANCE [None]
  - DRUG WITHDRAWAL SYNDROME [None]
  - DRY EYE [None]
  - DRY MOUTH [None]
  - EYE INFECTION [None]
  - FAECES DISCOLOURED [None]
  - FATIGUE [None]
  - HYPOAESTHESIA ORAL [None]
  - IRRITABILITY [None]
  - MALAISE [None]
  - MUSCLE SPASMS [None]
  - NAUSEA [None]
  - ORAL DISCOMFORT [None]
  - PARAESTHESIA ORAL [None]
  - PSYCHOMOTOR HYPERACTIVITY [None]
  - SOMNOLENCE [None]
  - UNEVALUABLE EVENT [None]
  - URINE ODOUR ABNORMAL [None]
